FAERS Safety Report 8862180 (Version 2)
Quarter: 2012Q4

REPORT INFORMATION
  Report Type: 
  Country: US (occurrence: US)
  Receive Date: 20121026
  Receipt Date: 20121211
  Transmission Date: 20130627
  Serious: No
  Sender: FDA-Public Use
  Company Number: US-TEVA-366743USA

PATIENT
  Sex: Female

DRUGS (1)
  1. ENJUVIA [Suspect]
     Indication: MENOPAUSE

REACTIONS (2)
  - Feeling hot [Not Recovered/Not Resolved]
  - Therapy regimen changed [Unknown]
